FAERS Safety Report 5645363-4 (Version None)
Quarter: 2008Q1

REPORT INFORMATION
  Report Type: 
  Country: None (occurrence: None)
  Receive Date: 20080229
  Receipt Date: 20050902
  Transmission Date: 20080703
  Serious: Yes (Life-Threatening, Hospitalization)
  Sender: FDA-Public Use
  Company Number: TR-ROCHE-416342

PATIENT
  Age: 60 Year
  Sex: Male
  Weight: 80 kg

DRUGS (8)
  1. VALGANCICLOVIR HCL [Suspect]
     Route: 048
     Dates: start: 20050823, end: 20050831
  2. BELOC [Concomitant]
     Dates: start: 20050831
  3. CYCLOSPORINE [Concomitant]
     Dates: start: 20050803
  4. PREDNISOLONE [Concomitant]
     Dates: start: 20050831
  5. MYCOSTATIN [Concomitant]
     Dates: start: 20050629
  6. FAMOTIDIN [Concomitant]
     Dates: start: 20050705
  7. BACTRIM [Concomitant]
     Dates: start: 20050630
  8. PRAVASTATIN [Concomitant]
     Dates: start: 20050705

REACTIONS (1)
  - PNEUMONIA CYTOMEGALOVIRAL [None]
